FAERS Safety Report 8573237 (Version 4)
Quarter: 2012Q4

REPORT INFORMATION
  Report Type: 
  Country: US (occurrence: US)
  Receive Date: 20120522
  Receipt Date: 20120910
  Transmission Date: 20130627
  Serious: Yes (Other)
  Sender: FDA-Public Use
  Company Number: US-PFIZER INC-2012120306

PATIENT
  Sex: Female

DRUGS (1)
  1. TIKOSYN [Suspect]
     Dosage: UNK, 6 pills a day
     Route: 048
     Dates: start: 20100111

REACTIONS (4)
  - Electrocardiogram QT prolonged [Recovered/Resolved]
  - Asthma [Recovered/Resolved]
  - Malaise [Recovered/Resolved]
  - Cardiac disorder [Unknown]
